FAERS Safety Report 8291849-6 (Version None)
Quarter: 2012Q2

REPORT INFORMATION
  Report Type: 
  Country: None (occurrence: None)
  Receive Date: 20120417
  Receipt Date: 20120410
  Transmission Date: 20120825
  Serious: Yes (Hospitalization)
  Sender: FDA-Public Use
  Company Number: US-ELI_LILLY_AND_COMPANY-US201203005712

PATIENT
  Age: 65 Year
  Sex: Female
  Weight: 45.351 kg

DRUGS (1)
  1. FORTEO [Suspect]
     Indication: OSTEOPOROSIS
     Dosage: 600 UG, QD
     Dates: start: 20101214

REACTIONS (1)
  - GASTROENTERITIS VIRAL [None]
